FAERS Safety Report 19769626 (Version 1)
Quarter: 2021Q3

REPORT INFORMATION
  Report Type: Spontaneous
  Country: US (occurrence: US)
  Receive Date: 20210831
  Receipt Date: 20210831
  Transmission Date: 20211014
  Serious: Yes (Other)
  Sender: FDA-Public Use
  Company Number: US-GLAXOSMITHKLINE-US2021GSK184389

PATIENT
  Sex: Male

DRUGS (12)
  1. ZANTAC [Suspect]
     Active Substance: RANITIDINE HYDROCHLORIDE
     Indication: RASH
     Dosage: 150 MG BOTH
     Route: 065
     Dates: start: 201201, end: 201701
  2. RANITIDINE. [Suspect]
     Active Substance: RANITIDINE
     Dosage: 300 MG, QD
     Route: 065
     Dates: start: 201201, end: 201701
  3. RANITIDINE. [Suspect]
     Active Substance: RANITIDINE
     Dosage: UNK
  4. RANITIDINE CAPSULE [Suspect]
     Active Substance: RANITIDINE
     Indication: RASH
     Dosage: 300 MG BOTH
     Route: 065
     Dates: start: 201201, end: 201701
  5. RANITIDINE CAPSULE [Suspect]
     Active Substance: RANITIDINE
     Dosage: 150 MG BOTH
     Route: 065
     Dates: start: 201201, end: 201701
  6. ZANTAC [Suspect]
     Active Substance: RANITIDINE HYDROCHLORIDE
     Dosage: 300 MG, QD
     Route: 065
     Dates: start: 201201, end: 201701
  7. RANITIDINE. [Suspect]
     Active Substance: RANITIDINE
     Indication: RASH
     Dosage: 150 MG BOTH
     Route: 065
     Dates: start: 201201, end: 201701
  8. ZANTAC [Suspect]
     Active Substance: RANITIDINE HYDROCHLORIDE
     Dosage: 300 MG, QD
     Route: 065
     Dates: start: 201201, end: 201701
  9. RANITIDINE. [Suspect]
     Active Substance: RANITIDINE
     Indication: RASH
     Dosage: 150 MG BOTH
     Route: 065
     Dates: start: 201201, end: 201701
  10. RANITIDINE. [Suspect]
     Active Substance: RANITIDINE
     Indication: RASH
     Dosage: 300 MG, QD
     Route: 065
     Dates: start: 201201, end: 201701
  11. ZANTAC [Suspect]
     Active Substance: RANITIDINE HYDROCHLORIDE
     Indication: RASH
     Dosage: 150 MG BOTH
     Route: 065
     Dates: start: 201201, end: 201701
  12. RANITIDINE. [Suspect]
     Active Substance: RANITIDINE
     Dosage: 300 MG, QD
     Route: 065
     Dates: start: 201201, end: 201701

REACTIONS (1)
  - Bladder cancer [Unknown]
